FAERS Safety Report 7042892-6 (Version None)
Quarter: 2010Q3

REPORT INFORMATION
  Report Type: 
  Country: None (occurrence: None)
  Receive Date: 20100929
  Receipt Date: 20100731
  Transmission Date: 20110219
  Serious: No
  Sender: FDA-Public Use
  Company Number: US-WYE-H16698110

PATIENT
  Sex: Male

DRUGS (3)
  1. PRISTIQ [Suspect]
     Indication: APATHY
     Dosage: 50 MG, UNSPECIFIED FREQUENCY, ORAL
     Route: 048
     Dates: start: 20100701
  2. PRISTIQ [Suspect]
     Indication: SLUGGISHNESS
     Dosage: 50 MG, UNSPECIFIED FREQUENCY, ORAL
     Route: 048
     Dates: start: 20100701
  3. TRAMADOL HCL [Concomitant]

REACTIONS (3)
  - AMBLYOPIA [None]
  - DIZZINESS [None]
  - VISION BLURRED [None]
